FAERS Safety Report 8811767 (Version 1)
Quarter: 2012Q4

REPORT INFORMATION
  Report Type: 
  Country: DE (occurrence: DE)
  Receive Date: 20120927
  Receipt Date: 20120927
  Transmission Date: 20130627
  Serious: Yes (Other)
  Sender: FDA-Public Use
  Company Number: DE-UCBSA-067384

PATIENT
  Sex: Female

DRUGS (2)
  1. VIMPAT [Suspect]
  2. VIMPAT [Suspect]
     Dosage: UPTITRATION

REACTIONS (1)
  - Atrioventricular block complete [Unknown]
